FAERS Safety Report 10049508 (Version 1)
Quarter: 2014Q1

REPORT INFORMATION
  Report Type: Spontaneous
  Country: BR (occurrence: None)
  Receive Date: 20140328
  Receipt Date: 20140328
  Transmission Date: 20141002
  Serious: Yes (Other)
  Sender: FDA-Public Use
  Company Number: VAL_03048_2014

PATIENT
  Sex: Female

DRUGS (2)
  1. METHERGINE [Suspect]
     Indication: AFTERBIRTH PAIN
  2. METHERGINE [Suspect]
     Indication: HAEMORRHAGE

REACTIONS (2)
  - Postpartum haemorrhage [None]
  - Afterbirth pain [None]
